FAERS Safety Report 11539158 (Version 2)
Quarter: 2015Q4

REPORT INFORMATION
  Report Type: Spontaneous
  Country: GB (occurrence: GB)
  Receive Date: 20150923
  Receipt Date: 20151005
  Transmission Date: 20160304
  Serious: Yes (Death, Other)
  Sender: FDA-Public Use
  Company Number: GB-ACCORD-033723

PATIENT
  Age: 77 Year
  Sex: Female

DRUGS (20)
  1. FLUCLOXACILLIN [Concomitant]
     Active Substance: FLUCLOXACILLIN
  2. FUCIDIN [Concomitant]
     Active Substance: FUSIDIC ACID
  3. MYCOPHENOLIC ACID. [Suspect]
     Active Substance: MYCOPHENOLIC ACID
     Indication: SARCOIDOSIS
     Route: 048
     Dates: start: 20120418, end: 20150827
  4. ACICLOVIR [Concomitant]
     Active Substance: ACYCLOVIR
  5. IPRATROPIUM [Concomitant]
     Active Substance: IPRATROPIUM
  6. METFORMIN [Concomitant]
     Active Substance: METFORMIN HYDROCHLORIDE
  7. ACETYLSALICYLIC ACID [Concomitant]
     Active Substance: ASPIRIN
  8. CHLORAMPHENICOL [Concomitant]
     Active Substance: CHLORAMPHENICOL
  9. PREDNISOLONE. [Concomitant]
     Active Substance: PREDNISOLONE
  10. LANSOPRAZOLE. [Concomitant]
     Active Substance: LANSOPRAZOLE
  11. ADCAL-D3 [Concomitant]
     Active Substance: CALCIUM CARBONATE\CHOLECALCIFEROL
  12. ALENDRONIC ACID [Concomitant]
     Active Substance: ALENDRONIC ACID
  13. FLUCONAZOLE. [Concomitant]
     Active Substance: FLUCONAZOLE
  14. GELCLAIR [Concomitant]
  15. NYSTATIN/NYSTATIN/LIPOSOME [Concomitant]
  16. SALBUTAMOL [Concomitant]
     Active Substance: ALBUTEROL
  17. SPIRONOLACTONE. [Concomitant]
     Active Substance: SPIRONOLACTONE
  18. CLOBETASOL [Concomitant]
     Active Substance: CLOBETASOL
  19. TAZOCIN [Concomitant]
     Active Substance: PIPERACILLIN SODIUM\TAZOBACTAM SODIUM
  20. LEVOTHYROXINE. [Concomitant]
     Active Substance: LEVOTHYROXINE

REACTIONS (4)
  - Varicella zoster virus infection [Fatal]
  - Multi-organ failure [Unknown]
  - Off label use [Unknown]
  - Immunosuppression [Not Recovered/Not Resolved]

NARRATIVE: CASE EVENT DATE: 20150824
